FAERS Safety Report 6753759-2 (Version None)
Quarter: 2010Q2

REPORT INFORMATION
  Report Type: 
  Country: None (occurrence: None)
  Receive Date: 20100603
  Receipt Date: 20100219
  Transmission Date: 20101027
  Serious: Yes (Other)
  Sender: FDA-Public Use
  Company Number: DK-ROCHE-705289

PATIENT
  Sex: Female

DRUGS (2)
  1. TAMIFLU [Suspect]
     Indication: INFLUENZA IMMUNISATION
     Route: 048
     Dates: start: 20091104, end: 20091109
  2. PANDEMRIX [Suspect]
     Indication: INFLUENZA IMMUNISATION
     Route: 030
     Dates: start: 20091104

REACTIONS (1)
  - DEPRESSION [None]
